FAERS Safety Report 4863986-7 (Version None)
Quarter: 2005Q4

REPORT INFORMATION
  Report Type: 
  Country: None (occurrence: None)
  Receive Date: 20051222
  Receipt Date: 20021105
  Transmission Date: 20060501
  Serious: Yes (Death, Congenital Anomaly)
  Sender: FDA-Public Use
  Company Number: FR-ABBOTT-02P-056-0203628-00

PATIENT
  Sex: Female

DRUGS (1)
  1. SIBUTRAL [Suspect]
     Indication: DRUG EXPOSURE DURING PREGNANCY

REACTIONS (10)
  - ABORTION INDUCED [None]
  - CEREBELLAR HYPOPLASIA [None]
  - CEREBELLAR TUMOUR [None]
  - CONGENITAL CENTRAL NERVOUS SYSTEM ANOMALY [None]
  - DISORDER OF ORBIT [None]
  - FACIAL DYSMORPHISM [None]
  - GINGIVAL HYPERTROPHY [None]
  - HEPATOMEGALY [None]
  - HYPERTELORISM OF ORBIT [None]
  - MUCOUS MEMBRANE DISORDER [None]
